FAERS Safety Report 15882233 (Version 2)
Quarter: 2019Q4

REPORT INFORMATION
  Report Type: Spontaneous
  Country: US (occurrence: US)
  Receive Date: 20190128
  Receipt Date: 20191211
  Transmission Date: 20200122
  Serious: No
  Sender: FDA-Public Use
  Company Number: US-PURDUE-USA-2018-0145271

PATIENT
  Sex: Female

DRUGS (4)
  1. GLIPIZIDE ER [Concomitant]
     Active Substance: GLIPIZIDE
     Indication: DIABETES MELLITUS
     Dosage: 5 MG, BID
     Route: 048
     Dates: start: 201709
  2. EXENATIDE. [Concomitant]
     Active Substance: EXENATIDE
     Indication: PRODUCT USED FOR UNKNOWN INDICATION
     Route: 065
  3. DILAUDID [Suspect]
     Active Substance: HYDROMORPHONE HYDROCHLORIDE
     Dosage: UNK
     Route: 048
  4. DILAUDID [Suspect]
     Active Substance: HYDROMORPHONE HYDROCHLORIDE
     Indication: PROCEDURAL PAIN
     Dosage: UNK
     Route: 048
     Dates: start: 2015

REACTIONS (9)
  - Glycosylated haemoglobin increased [Recovering/Resolving]
  - Nausea [Unknown]
  - Disturbance in attention [Unknown]
  - Blood glucose increased [Unknown]
  - Amnesia [Unknown]
  - Fatigue [Unknown]
  - Product dispensing error [Unknown]
  - Medication error [Unknown]
  - Hypersomnia [Unknown]

NARRATIVE: CASE EVENT DATE: 2015
